FAERS Safety Report 25689192 (Version 5)
Quarter: 2025Q4

REPORT INFORMATION
  Report Type: Report from Study
  Country: EU (occurrence: EU)
  Receive Date: 20250818
  Receipt Date: 20251007
  Transmission Date: 20260118
  Serious: Yes (Hospitalization)
  Sender: DAIICHI
  Company Number: EU-DSJP-DS-2025-159295-IT

PATIENT
  Age: 72 Year
  Sex: Female
  Weight: 55 kg

DRUGS (27)
  1. ENHERTU [Suspect]
     Active Substance: FAM-TRASTUZUMAB DERUXTECAN-NXKI
     Indication: HER2 low breast cancer
     Dosage: 5.4 MG/KG, CYCLIC
     Route: 042
     Dates: start: 20250306, end: 20250306
  2. ENHERTU [Suspect]
     Active Substance: FAM-TRASTUZUMAB DERUXTECAN-NXKI
     Indication: Breast cancer metastatic
  3. DOXAZOSINA [DOXAZOSIN MESILATE] [Concomitant]
     Indication: Hypertension
     Dosage: 1 DOSAGE FORM, AS NEEDED (WHEN HIGH BLOOD PRESSURE)
     Route: 048
     Dates: start: 202501
  4. ESOMEPRAZOLE [Concomitant]
     Active Substance: ESOMEPRAZOLE
     Indication: Gastrointestinal disorder prophylaxis
     Dosage: 1 DOSAGE FORM, DAILY
     Route: 048
     Dates: start: 2020
  5. FERROFOLIN [Concomitant]
     Indication: Anaemia
     Dosage: 1 DOSAGE FORM, DAILY
     Route: 048
     Dates: start: 202411
  6. DEXAMETHASONE [Concomitant]
     Active Substance: DEXAMETHASONE
     Indication: Nausea
     Dosage: 8 DROPS, QD
     Route: 048
     Dates: start: 20250619
  7. DEXAMETHASONE [Concomitant]
     Active Substance: DEXAMETHASONE
     Indication: Antiemetic supportive care
  8. CHOLECALCIFEROL [Concomitant]
     Active Substance: CHOLECALCIFEROL
     Indication: Vitamin supplementation
     Dosage: 25000 IU, ONCE EVERY 1 WK
     Route: 048
     Dates: start: 2020
  9. ACETAMINOPHEN [Concomitant]
     Active Substance: ACETAMINOPHEN
     Indication: Pain
     Dosage: 1000 MG, AS NEEDED
     Route: 048
     Dates: start: 20250305
  10. MORPHINE [Concomitant]
     Active Substance: MORPHINE
     Indication: Pain
     Dosage: 4 DROPS, AS NEEDED
     Route: 048
     Dates: start: 20250305
  11. EXEMESTANE [Concomitant]
     Active Substance: EXEMESTANE
     Indication: Breast cancer
     Dosage: 1 DOSAGE FORM, QD
     Route: 048
     Dates: start: 20250618, end: 20250804
  12. MORPHINE [Concomitant]
     Active Substance: MORPHINE
     Indication: Pain
     Dosage: 1 DOSAGE FORM, SINGLE
     Route: 042
     Dates: start: 20250809, end: 20250809
  13. MORPHINE [Concomitant]
     Active Substance: MORPHINE
     Indication: Pain
     Dosage: 0.5 DOSAGE FORM, SINGLE
     Route: 058
     Dates: start: 20250809, end: 20250809
  14. MORPHINE [Concomitant]
     Active Substance: MORPHINE
     Dosage: 2 DOSAGE FORM, BID
     Route: 042
     Dates: start: 20250810, end: 20250810
  15. ACETAMINOPHEN [Concomitant]
     Active Substance: ACETAMINOPHEN
     Indication: Pyrexia
     Dosage: 1000 MG, SINGLE
     Route: 042
     Dates: start: 20250809, end: 20250809
  16. RINGER ACETATO [Concomitant]
     Indication: Electrolyte substitution therapy
     Dosage: 1000 ML, SINGLE
     Route: 042
     Dates: start: 20250809, end: 20250809
  17. RINGER ACETATO [Concomitant]
     Dosage: 1000 ML, BID
     Route: 042
     Dates: start: 20250810, end: 20250814
  18. TAPENTADOL [Concomitant]
     Active Substance: TAPENTADOL
     Indication: Pain
     Dosage: 200 MG, BID
     Route: 048
     Dates: start: 20250705, end: 20250808
  19. OMEPRAZOLE [Concomitant]
     Active Substance: OMEPRAZOLE
     Indication: Premedication
     Dosage: 20 MG MG BEFORE THE THERAPY CYCLE
     Dates: start: 20250306
  20. ONDANSETRON [Concomitant]
     Active Substance: ONDANSETRON
     Indication: Premedication
     Dosage: 8 MG BEFORE THE THERAPY CYCLE
     Route: 042
     Dates: start: 20250725
  21. FUROSEMIDE [Concomitant]
     Active Substance: FUROSEMIDE
     Indication: Hypertension
     Dosage: 25 MG, AS NEEDED
     Route: 048
     Dates: start: 202508
  22. ACETAMINOPHEN\CODEINE PHOSPHATE [Concomitant]
     Active Substance: ACETAMINOPHEN\CODEINE PHOSPHATE
     Indication: Pain management
     Dosage: 1 SACHET, AS NEEDED
     Route: 048
     Dates: start: 202508
  23. PANTOPRAZOLE [Concomitant]
     Active Substance: PANTOPRAZOLE
     Indication: Gastrointestinal disorder prophylaxis
     Dosage: 40 MG, DAILY
     Route: 042
     Dates: start: 20250810, end: 20250816
  24. ALIZAPRIDE [Concomitant]
     Active Substance: ALIZAPRIDE
     Indication: Nausea
     Dosage: 1 DOSAGE FORM, SINGLE
     Route: 042
     Dates: start: 20250810, end: 20250810
  25. LEVOFLOXACIN [Concomitant]
     Active Substance: LEVOFLOXACIN
     Indication: Antibiotic therapy
     Dosage: 1.5 DOSAGE FORM, QD
     Route: 042
     Dates: start: 20250810, end: 20250816
  26. METOCLOPRAMIDE [Concomitant]
     Active Substance: METOCLOPRAMIDE
     Indication: Nausea
     Dosage: 10 MG, SINGLE
     Route: 042
     Dates: start: 20250810, end: 20250810
  27. DEXAMETHASONE [Concomitant]
     Active Substance: DEXAMETHASONE
     Indication: Premedication
     Dosage: 8 MG BEFORE THE THERAPY CYCLE
     Route: 042
     Dates: start: 20250306

REACTIONS (4)
  - Hyperpyrexia [Recovered/Resolved]
  - Neutropenia [Recovered/Resolved]
  - Dyspnoea [Recovered/Resolved]
  - Nausea [Recovered/Resolved]

NARRATIVE: CASE EVENT DATE: 20250809
